FAERS Safety Report 20224663 (Version 2)
Quarter: 2022Q1

REPORT INFORMATION
  Report Type: Spontaneous
  Country: NL (occurrence: NL)
  Receive Date: 20211223
  Receipt Date: 20220107
  Transmission Date: 20220423
  Serious: Yes (Life-Threatening, Hospitalization, Other)
  Sender: FDA-Public Use
  Company Number: NL-TEVA-2021-NL-1989677

PATIENT
  Age: 45 Year
  Sex: Male

DRUGS (15)
  1. DIAZEPAM [Suspect]
     Active Substance: DIAZEPAM
     Indication: Drug abuse
     Dosage: 30 MILLIGRAM DAILY;
     Route: 065
  2. DIAZEPAM [Suspect]
     Active Substance: DIAZEPAM
     Indication: Drug withdrawal syndrome
     Route: 065
  3. DIAZEPAM [Suspect]
     Active Substance: DIAZEPAM
     Route: 065
  4. OLANZAPINE [Suspect]
     Active Substance: OLANZAPINE
     Indication: Drug withdrawal syndrome
     Route: 065
  5. SODIUM OXYBATE [Suspect]
     Active Substance: SODIUM OXYBATE
     Indication: Drug abuse
     Dosage: DOSE- 10-15 ML; HAD USED 40 ML OF UNKNOWN CONCENTRATION EVERY HOUR 48H PRIOR ADMISSION (ABUSE)
     Route: 048
  6. SODIUM OXYBATE [Suspect]
     Active Substance: SODIUM OXYBATE
     Indication: Drug withdrawal syndrome
     Dosage: 500 MG/ML (TREATMENT)
     Route: 048
  7. SODIUM OXYBATE [Suspect]
     Active Substance: SODIUM OXYBATE
     Route: 050
  8. SODIUM OXYBATE [Suspect]
     Active Substance: SODIUM OXYBATE
     Route: 050
  9. BACLOFEN [Suspect]
     Active Substance: BACLOFEN
     Indication: Drug withdrawal syndrome
     Dosage: 3 TIMES A DAY
     Route: 050
  10. CLONIDINE [Suspect]
     Active Substance: CLONIDINE
     Indication: Drug withdrawal syndrome
     Route: 042
  11. MIDAZOLAM [Suspect]
     Active Substance: MIDAZOLAM
     Indication: Drug withdrawal syndrome
     Route: 042
  12. MIDAZOLAM [Suspect]
     Active Substance: MIDAZOLAM
     Route: 042
  13. PROPOFOL [Suspect]
     Active Substance: PROPOFOL
     Indication: Drug withdrawal syndrome
     Route: 042
  14. THIAMINE [Concomitant]
     Active Substance: THIAMINE
     Indication: Prophylaxis
     Route: 042
  15. MAGNESIUM SULFATE [Concomitant]
     Active Substance: MAGNESIUM SULFATE
     Indication: Constipation prophylaxis
     Route: 065

REACTIONS (10)
  - Drug withdrawal syndrome [Recovered/Resolved]
  - Hypernatraemia [Unknown]
  - Loss of consciousness [Recovered/Resolved]
  - Akathisia [Recovered/Resolved]
  - Respiratory failure [Recovered/Resolved]
  - Autonomic nervous system imbalance [Recovered/Resolved]
  - Drug abuse [Unknown]
  - Drug dependence [Unknown]
  - Toxicity to various agents [Recovered/Resolved]
  - Drug ineffective [Unknown]
